FAERS Safety Report 5004321-3 (Version None)
Quarter: 2006Q2

REPORT INFORMATION
  Report Type: 
  Country: None (occurrence: None)
  Receive Date: 20060517
  Receipt Date: 20050112
  Transmission Date: 20061013
  Serious: Yes (Hospitalization, Other)
  Sender: FDA-Public Use
  Company Number: US-MERCK-0501USA01751

PATIENT
  Age: 35 Year
  Sex: Female
  Weight: 107 kg

DRUGS (1)
  1. VIOXX [Suspect]
     Indication: ARTHRITIS
     Route: 048
     Dates: start: 20010601, end: 20020501

REACTIONS (12)
  - ANGINA PECTORIS [None]
  - BIPOLAR DISORDER [None]
  - CHEST PAIN [None]
  - CHRONIC OBSTRUCTIVE PULMONARY DISEASE [None]
  - DIVERTICULUM [None]
  - HEPATIC STEATOSIS [None]
  - HEPATOMEGALY [None]
  - MYOCARDIAL INFARCTION [None]
  - ONYCHOMYCOSIS [None]
  - TACHYCARDIA [None]
  - UPPER RESPIRATORY TRACT INFECTION [None]
  - VENTRICULAR DYSFUNCTION [None]
